FAERS Safety Report 17053560 (Version 2)
Quarter: 2020Q2

REPORT INFORMATION
  Report Type: Spontaneous
  Country: DE (occurrence: DE)
  Receive Date: 20191120
  Receipt Date: 20200616
  Transmission Date: 20200713
  Serious: Yes (Death)
  Sender: FDA-Public Use
  Company Number: DE-PFIZER INC-2019499633

PATIENT
  Sex: Female

DRUGS (10)
  1. RITUXIMAB. [Suspect]
     Active Substance: RITUXIMAB
     Indication: DIFFUSE LARGE B-CELL LYMPHOMA
     Dosage: 2ND LINE, R-GEMOX, 3 CYCLES
     Route: 065
     Dates: start: 201808, end: 201811
  2. RITUXIMAB. [Suspect]
     Active Substance: RITUXIMAB
     Dosage: 1ST LINE, R-CHOP, 6+2 CYCLES
     Route: 065
     Dates: start: 201711, end: 201805
  3. METHOTREXATE SODIUM. [Suspect]
     Active Substance: METHOTREXATE SODIUM
     Indication: DIFFUSE LARGE B-CELL LYMPHOMA
     Dosage: 1ST LINE, R-CHOP, 6+2 CYCLES
     Route: 065
     Dates: start: 201711, end: 201805
  4. THALIDOMIDE [Suspect]
     Active Substance: THALIDOMIDE
     Indication: DIFFUSE LARGE B-CELL LYMPHOMA
     Dosage: 1ST LINE, R-CHOP, 6+2 CYCLES
     Route: 065
     Dates: start: 201711, end: 201805
  5. RITUXIMAB. [Suspect]
     Active Substance: RITUXIMAB
     Dosage: FURTHER LINES
     Route: 065
     Dates: start: 201812, end: 201901
  6. PREDNISONE. [Suspect]
     Active Substance: PREDNISONE
     Indication: DIFFUSE LARGE B-CELL LYMPHOMA
     Dosage: 60 MG, DAILY
     Route: 065
     Dates: start: 20190212
  7. CYCLOPHOSPHAMIDE. [Suspect]
     Active Substance: CYCLOPHOSPHAMIDE
     Indication: DIFFUSE LARGE B-CELL LYMPHOMA
     Dosage: 1ST LINE, R-CHOP, 6+2 CYCLES
     Route: 065
     Dates: start: 201711, end: 201805
  8. BENDAMUSTINE [Suspect]
     Active Substance: BENDAMUSTINE
     Indication: DIFFUSE LARGE B-CELL LYMPHOMA
     Route: 065
     Dates: start: 20190214
  9. DEXAMETHASONE. [Suspect]
     Active Substance: DEXAMETHASONE
     Indication: DIFFUSE LARGE B-CELL LYMPHOMA
     Dosage: 1ST LINE, R-CHOP , 6+2 CYCLES
     Route: 065
     Dates: start: 201711, end: 201805
  10. AZATHIOPRINE. [Suspect]
     Active Substance: AZATHIOPRINE
     Indication: DIFFUSE LARGE B-CELL LYMPHOMA
     Dosage: 1ST LINE, R-CHOP, 6+2 CYCLES
     Route: 065
     Dates: start: 201711, end: 201805

REACTIONS (3)
  - Aspartate aminotransferase increased [Unknown]
  - Death [Fatal]
  - Blood lactate dehydrogenase increased [Unknown]
